FAERS Safety Report 17402041 (Version 1)
Quarter: 2020Q1

REPORT INFORMATION
  Report Type: Report from Study
  Country: IT (occurrence: IT)
  Receive Date: 20200211
  Receipt Date: 20200211
  Transmission Date: 20200409
  Serious: Yes (Other)
  Sender: FDA-Public Use
  Company Number: IT-BRISTOL-MYERS SQUIBB COMPANY-BMS-2019-053187

PATIENT
  Sex: Female

DRUGS (1)
  1. ABATACEPT [Suspect]
     Active Substance: ABATACEPT
     Indication: RHEUMATOID ARTHRITIS
     Dosage: 125 MILLIGRAM, QWK
     Route: 065
     Dates: start: 20190520

REACTIONS (9)
  - Diarrhoea [Recovered/Resolved]
  - Pain in extremity [Unknown]
  - Skin ulcer [Not Recovered/Not Resolved]
  - Impaired healing [Not Recovered/Not Resolved]
  - Pleurisy [Not Recovered/Not Resolved]
  - Phlebitis [Not Recovered/Not Resolved]
  - Rib fracture [Unknown]
  - Cough [Recovered/Resolved]
  - Blister [Unknown]
